FAERS Safety Report 9749541 (Version 1)
Quarter: 2013Q3

REPORT INFORMATION
  Report Type: Spontaneous
  Country: IT (occurrence: None)
  Receive Date: 20130912
  Receipt Date: 20130912
  Transmission Date: 20140515
  Serious: Yes (Hospitalization)
  Sender: FDA-Public Use
  Company Number: NL01PV13.34055

PATIENT
  Age: 45 Year
  Sex: Female

DRUGS (7)
  1. ZOLPIDEM [Suspect]
     Indication: SELF INJURIOUS BEHAVIOUR
     Dosage: 1 DAY
     Dates: start: 20130821, end: 20130821
  2. CHLORIDESMETHYLDIAZEPAM [Suspect]
     Indication: SELF INJURIOUS BEHAVIOUR
     Dosage: 40 ML, DAILY, SOLUTION FOR ORAL DROPS, ORAL
     Route: 048
     Dates: start: 20130821, end: 20130821
  3. DEPALGOS [Suspect]
     Indication: SELF INJURIOUS BEHAVIOUR
     Dosage: UNK; ORAL
     Route: 048
     Dates: start: 20130821, end: 20130821
  4. OXYCONTIN (OXYCODONE HYDROCHLORIDE) [Suspect]
     Indication: SELF INJURIOUS BEHAVIOUR
     Dosage: UNK; ORAL
     Route: 048
     Dates: start: 20130821, end: 20130821
  5. TELMISARTAN [Concomitant]
  6. BISOPROLOL [Concomitant]
  7. OMEPRAZOLE [Concomitant]

REACTIONS (2)
  - Coma [None]
  - Drug abuse [None]
